FAERS Safety Report 12205432 (Version 1)
Quarter: 2016Q1

REPORT INFORMATION
  Report Type: Spontaneous
  Country: US (occurrence: US)
  Receive Date: 20160323
  Receipt Date: 20160323
  Transmission Date: 20160526
  Serious: No
  Sender: FDA-Public Use
  Company Number: US-GALDERMA-US15001391

PATIENT
  Age: 72 Year
  Sex: Female

DRUGS (2)
  1. UNKNOWN EYE DROPS [Concomitant]
     Active Substance: UNSPECIFIED INGREDIENT
     Route: 047
  2. CLOBEX [Suspect]
     Active Substance: CLOBETASOL PROPIONATE
     Route: 061
     Dates: start: 20150312, end: 20150312

REACTIONS (5)
  - Lacrimation increased [Not Recovered/Not Resolved]
  - Eye pain [Not Recovered/Not Resolved]
  - Eye irritation [Not Recovered/Not Resolved]
  - Foreign body sensation in eyes [Not Recovered/Not Resolved]
  - Accidental exposure to product [Not Recovered/Not Resolved]

NARRATIVE: CASE EVENT DATE: 20150313
